FAERS Safety Report 9069561 (Version 2)
Quarter: 2013Q2

REPORT INFORMATION
  Report Type: Spontaneous
  Country: AU (occurrence: AU)
  Receive Date: 20130215
  Receipt Date: 20130405
  Transmission Date: 20140414
  Serious: Yes (Hospitalization, Other)
  Sender: FDA-Public Use
  Company Number: AU-ELI_LILLY_AND_COMPANY-AU201302002452

PATIENT
  Age: 74 Year
  Sex: Female

DRUGS (2)
  1. FORTEO [Suspect]
     Indication: OSTEOPOROSIS
     Dosage: UNK, QD
     Dates: start: 20121018, end: 20121128
  2. PROLIA [Concomitant]

REACTIONS (4)
  - Supraventricular tachycardia [Unknown]
  - Pruritus [Unknown]
  - Rash erythematous [Unknown]
  - Headache [Unknown]
